FAERS Safety Report 9149968 (Version 1)
Quarter: 2013Q1

REPORT INFORMATION
  Report Type: Spontaneous
  Country: US (occurrence: US)
  Receive Date: 20130308
  Receipt Date: 20130308
  Transmission Date: 20140127
  Serious: No
  Sender: FDA-Public Use
  Company Number: US-ENDO PHARMACEUTICALS INC.-OPCR20120957

PATIENT
  Sex: Male

DRUGS (2)
  1. OPANA ER 20MG [Suspect]
     Indication: BACK PAIN
     Route: 048
     Dates: start: 20120418, end: 2012
  2. OPANA ER [Concomitant]
     Indication: BACK PAIN
     Route: 048
     Dates: start: 201110, end: 20120418

REACTIONS (7)
  - Tinnitus [Unknown]
  - Medication residue present [Recovered/Resolved]
  - Nausea [Unknown]
  - Abdominal discomfort [Unknown]
  - Abdominal pain upper [Unknown]
  - Headache [Unknown]
  - Drug ineffective [Recovered/Resolved]
